FAERS Safety Report 13743690 (Version 1)
Quarter: 2017Q3

REPORT INFORMATION
  Report Type: Spontaneous
  Country: US (occurrence: US)
  Receive Date: 20170711
  Receipt Date: 20170711
  Transmission Date: 20171127
  Serious: Yes (Other)
  Sender: FDA-Public Use
  Company Number: US-TEVA-786378USA

PATIENT
  Age: 52 Year
  Sex: Female

DRUGS (1)
  1. ADENOSINE. [Suspect]
     Active Substance: ADENOSINE
     Dosage: 18 MG TWICE
     Route: 065

REACTIONS (2)
  - Bronchospasm [Recovered/Resolved]
  - Hypoxia [Recovered/Resolved]
